FAERS Safety Report 9719028 (Version 1)
Quarter: 2013Q4

REPORT INFORMATION
  Report Type: Spontaneous
  Country: AT (occurrence: None)
  Receive Date: 20131126
  Receipt Date: 20131126
  Transmission Date: 20140711
  Serious: Yes (Hospitalization)
  Sender: FDA-Public Use
  Company Number: SP07258

PATIENT
  Age: 62 Year
  Sex: Female

DRUGS (1)
  1. XIFAXAN [Suspect]
     Indication: ABDOMINAL INFECTION
     Route: 048
     Dates: start: 20130916, end: 20130918

REACTIONS (4)
  - Haematochezia [None]
  - Gingival bleeding [None]
  - Tachycardia [None]
  - Cardiovascular insufficiency [None]
